FAERS Safety Report 18368682 (Version 1)
Quarter: 2020Q4

REPORT INFORMATION
  Report Type: Spontaneous
  Country: US (occurrence: US)
  Receive Date: 20201010
  Receipt Date: 20201010
  Transmission Date: 20210114
  Serious: Yes (Hospitalization)
  Sender: FDA-Public Use
  Company Number: US-ABBVIE-20K-163-3534289-00

PATIENT
  Age: 79 Year
  Sex: Female
  Weight: 133.48 kg

DRUGS (5)
  1. GABAPENTIN. [Suspect]
     Active Substance: GABAPENTIN
     Indication: PRODUCT USED FOR UNKNOWN INDICATION
     Dosage: 2400MG BY MOUTH EACH DAY
     Route: 065
     Dates: start: 201911
  2. LYRICA [Suspect]
     Active Substance: PREGABALIN
     Indication: FIBROMYALGIA
  3. HUMIRA [Suspect]
     Active Substance: ADALIMUMAB
     Indication: CROHN^S DISEASE
     Route: 058
     Dates: start: 201711
  4. LYRICA [Suspect]
     Active Substance: PREGABALIN
     Indication: RESTLESS LEGS SYNDROME
     Dosage: 150MG BY MOUTH FOUR TIMES PER DAY
     Route: 048
     Dates: start: 201911
  5. HUMIRA [Suspect]
     Active Substance: ADALIMUMAB
     Indication: COLITIS ULCERATIVE

REACTIONS (7)
  - Restless legs syndrome [Unknown]
  - Middle insomnia [Unknown]
  - Weight increased [Not Recovered/Not Resolved]
  - Fibromyalgia [Unknown]
  - Catheterisation cardiac [Unknown]
  - Arthritis [Unknown]
  - Dyspnoea [Recovering/Resolving]

NARRATIVE: CASE EVENT DATE: 202003
